FAERS Safety Report 10081063 (Version 1)
Quarter: 2014Q2

REPORT INFORMATION
  Report Type: Spontaneous
  Country: US (occurrence: US)
  Receive Date: 20140416
  Receipt Date: 20140416
  Transmission Date: 20141212
  Serious: No
  Sender: FDA-Public Use
  Company Number: US-009507513-1404USA005235

PATIENT
  Age: 71 Year
  Sex: 0

DRUGS (2)
  1. JANUVIA [Suspect]
     Dosage: UNK
     Route: 048
  2. METFORMIN [Suspect]
     Dosage: UNK

REACTIONS (1)
  - Blood glucose abnormal [Unknown]
